FAERS Safety Report 4585702-9 (Version None)
Quarter: 2005Q1

REPORT INFORMATION
  Report Type: 
  Country: None (occurrence: None)
  Receive Date: 20050217
  Receipt Date: 20041222
  Transmission Date: 20050727
  Serious: Yes (Disabling)
  Sender: FDA-Public Use
  Company Number: PHNR2004AU01749

PATIENT
  Age: 33 Year
  Sex: Female

DRUGS (2)
  1. TEGRETOL [Suspect]
     Indication: EPILEPSY
     Dosage: UNK, UNK
     Dates: start: 20020101, end: 20030601
  2. TEGRETOL [Suspect]
     Dosage: 1400 MG/DAY
     Dates: start: 20030601

REACTIONS (1)
  - MENSTRUATION IRREGULAR [None]
